FAERS Safety Report 6125430-1 (Version None)
Quarter: 2009Q1

REPORT INFORMATION
  Report Type: 
  Country: None (occurrence: None)
  Receive Date: 20090319
  Receipt Date: 20090319
  Transmission Date: 20090719
  Serious: Yes (Hospitalization, Disabling)
  Sender: FDA-Public Use
  Company Number: None

PATIENT
  Age: 59 Year
  Sex: Male

DRUGS (1)
  1. MOXIFLOXACIN HCL [Suspect]
     Indication: BACTERIAL INFECTION
     Dates: start: 20081125, end: 20081129

REACTIONS (13)
  - COMPARTMENT SYNDROME [None]
  - GANGRENE [None]
  - HYPOTENSION [None]
  - LEG AMPUTATION [None]
  - NO THERAPEUTIC RESPONSE [None]
  - PARAESTHESIA [None]
  - PERIPHERAL COLDNESS [None]
  - RHABDOMYOLYSIS [None]
  - SEPSIS [None]
  - SKIN DISCOLOURATION [None]
  - STAPHYLOCOCCAL BACTERAEMIA [None]
  - STEVENS-JOHNSON SYNDROME [None]
  - TOXIC EPIDERMAL NECROLYSIS [None]
